FAERS Safety Report 5943033-6 (Version None)
Quarter: 2008Q4

REPORT INFORMATION
  Report Type: 
  Country: None (occurrence: None)
  Receive Date: 20081106
  Receipt Date: 20081029
  Transmission Date: 20090506
  Serious: Yes (Hospitalization, Other)
  Sender: FDA-Public Use
  Company Number: DE-CELGENEUS-062-21880-08090626

PATIENT
  Sex: Male
  Weight: 108 kg

DRUGS (4)
  1. REVLIMID [Suspect]
     Indication: MULTIPLE MYELOMA
     Route: 048
     Dates: start: 20080902, end: 20080907
  2. REVLIMID [Suspect]
     Route: 048
     Dates: start: 20080909, end: 20080910
  3. DEXAMETHASONE [Concomitant]
     Indication: DRUG USE FOR UNKNOWN INDICATION
     Route: 065
  4. CLEXANE [Concomitant]
     Indication: PROPHYLAXIS

REACTIONS (3)
  - ATRIAL FIBRILLATION [None]
  - CORONARY ARTERY STENOSIS [None]
  - TACHYARRHYTHMIA [None]
